FAERS Safety Report 16681313 (Version 1)
Quarter: 2019Q3

REPORT INFORMATION
  Report Type: Spontaneous
  Country: GB (occurrence: GB)
  Receive Date: 20190808
  Receipt Date: 20190808
  Transmission Date: 20191004
  Serious: Yes (Hospitalization, Other)
  Sender: FDA-Public Use
  Company Number: GB-ACCORD-150574

PATIENT
  Age: 40 Year
  Sex: Female
  Weight: 74 kg

DRUGS (17)
  1. MYCOPHENOLATE MOFETIL. [Suspect]
     Active Substance: MYCOPHENOLATE MOFETIL
     Indication: SCLERODERMA
     Route: 048
     Dates: start: 20150401, end: 20190127
  2. RAMIPRIL. [Concomitant]
     Active Substance: RAMIPRIL
  3. METHOCARBAMOL. [Concomitant]
     Active Substance: METHOCARBAMOL
     Dosage: AT NIGHT, INTERVAL: 1
  4. METOCLOPRAMIDE. [Concomitant]
     Active Substance: METOCLOPRAMIDE
  5. CYCLIZINE [Concomitant]
     Active Substance: CYCLIZINE
     Dosage: 50 MG THREE TIMES A DAY
  6. PAROXETINE. [Concomitant]
     Active Substance: PAROXETINE
  7. ESOMEPRAZOLE/ESOMEPRAZOLE MAGNESIUM/ESOMEPRAZOLE SODIUM [Concomitant]
  8. PREGABALIN. [Concomitant]
     Active Substance: PREGABALIN
  9. CELECOXIB. [Concomitant]
     Active Substance: CELECOXIB
  10. METHOTREXATE. [Concomitant]
     Active Substance: METHOTREXATE
     Route: 058
  11. FOLIC ACID. [Concomitant]
     Active Substance: FOLIC ACID
     Dosage: (NOT ON METHOTREXATE DAY)
  12. BOSENTAN. [Concomitant]
     Active Substance: BOSENTAN
  13. DESOGESTREL [Concomitant]
     Active Substance: DESOGESTREL
  14. RANITIDINE. [Concomitant]
     Active Substance: RANITIDINE
  15. MEBEVERINE [Concomitant]
     Active Substance: MEBEVERINE
  16. FEXOFENADINE/FEXOFENADINE HYDROCHLORIDE [Concomitant]
  17. ZOMORPH [Concomitant]
     Active Substance: MORPHINE SULFATE

REACTIONS (3)
  - Oesophageal ulcer [Recovered/Resolved]
  - Oesophageal stenosis [Recovered/Resolved]
  - Off label use [Unknown]
